FAERS Safety Report 9536743 (Version 1)
Quarter: 2013Q3

REPORT INFORMATION
  Report Type: Spontaneous
  Country: US (occurrence: US)
  Receive Date: 20130919
  Receipt Date: 20130919
  Transmission Date: 20140515
  Serious: Yes (Other)
  Sender: FDA-Public Use
  Company Number: US-ASTRAZENECA-2013SE68866

PATIENT
  Age: 85 Year
  Sex: Female
  Weight: 56.7 kg

DRUGS (10)
  1. NEXIUM [Suspect]
     Indication: GASTROOESOPHAGEAL REFLUX DISEASE
     Route: 048
     Dates: start: 2001, end: 201308
  2. NEXIUM [Suspect]
     Indication: GASTROOESOPHAGEAL REFLUX DISEASE
     Route: 048
  3. PRILOSEC OTC [Suspect]
     Indication: GASTROOESOPHAGEAL REFLUX DISEASE
     Route: 048
     Dates: start: 2013
  4. LEVOTHYROXINE [Concomitant]
     Indication: THYROID DISORDER
     Route: 048
     Dates: start: 1993
  5. NIFEDICAL [Concomitant]
     Indication: RAYNAUD^S PHENOMENON
     Route: 048
     Dates: start: 2003
  6. REVIMELINE [Concomitant]
     Indication: SJOGREN^S SYNDROME
     Route: 048
  7. BABY ASPIRIN [Concomitant]
     Route: 048
  8. ACIDOPHILUS [Concomitant]
  9. DIGESTIVE ENZYMES [Concomitant]
  10. MSM [Concomitant]

REACTIONS (9)
  - Hip fracture [Unknown]
  - Osteoarthritis [Unknown]
  - Sjogren^s syndrome [Unknown]
  - Gait disturbance [Unknown]
  - Body height decreased [Unknown]
  - Raynaud^s phenomenon [Unknown]
  - Cystitis [Unknown]
  - Dyspepsia [Unknown]
  - Drug dose omission [Unknown]
